FAERS Safety Report 24046751 (Version 1)
Quarter: 2024Q3

REPORT INFORMATION
  Report Type: Spontaneous
  Country: US (occurrence: US)
  Receive Date: 20240703
  Receipt Date: 20240703
  Transmission Date: 20241016
  Serious: Yes (Other)
  Sender: ABBVIE
  Company Number: US-ABBVIE-5822694

PATIENT
  Sex: Female
  Weight: 45 kg

DRUGS (3)
  1. SKYRIZI [Suspect]
     Active Substance: RISANKIZUMAB-RZAA
     Indication: Crohn^s disease
     Dosage: UNKNOWN
     Route: 058
     Dates: start: 20231012
  2. BUDESONIDE [Concomitant]
     Active Substance: BUDESONIDE
     Indication: Gastric ulcer
  3. ESTROGENON [Concomitant]
     Indication: Urethral disorder
     Dosage: ESTROGEN CREAM

REACTIONS (13)
  - Bladder neoplasm [Recovered/Resolved]
  - Pain [Not Recovered/Not Resolved]
  - Panic attack [Recovered/Resolved]
  - Cough [Not Recovered/Not Resolved]
  - Blood urine present [Recovered/Resolved]
  - Blood loss anaemia [Not Recovered/Not Resolved]
  - Cystitis [Recovered/Resolved]
  - Rash [Not Recovered/Not Resolved]
  - Nausea [Not Recovered/Not Resolved]
  - Dizziness [Not Recovered/Not Resolved]
  - Renal cyst [Not Recovered/Not Resolved]
  - Anaemia [Unknown]
  - Asthenia [Not Recovered/Not Resolved]

NARRATIVE: CASE EVENT DATE: 20230101
